FAERS Safety Report 24226520 (Version 1)
Quarter: 2024Q3

REPORT INFORMATION
  Report Type: Spontaneous
  Country: US (occurrence: US)
  Receive Date: 20240820
  Receipt Date: 20240820
  Transmission Date: 20241016
  Serious: No
  Sender: REGENERON
  Company Number: US-REGENERON PHARMACEUTICALS, INC.-2023-114610

PATIENT
  Sex: Male

DRUGS (19)
  1. PRALUENT [Suspect]
     Active Substance: ALIROCUMAB
     Indication: Hypercholesterolaemia
     Dosage: 75 MG, Q2W
     Route: 058
     Dates: start: 20230903
  2. FINASTERIDE [Concomitant]
     Active Substance: FINASTERIDE
     Indication: Prostatomegaly
     Dosage: 5 MG, 1 PM
     Route: 065
     Dates: start: 1999
  3. TRAZODONE [Concomitant]
     Active Substance: TRAZODONE HYDROCHLORIDE
     Indication: Sleep disorder
     Dosage: 100 MG, 1 PM
     Route: 065
     Dates: start: 201909
  4. PANTOPRAZOLE [Concomitant]
     Active Substance: PANTOPRAZOLE
     Indication: Gastrooesophageal reflux disease
     Dosage: 40 MG, 1 AM
     Route: 065
     Dates: start: 20220916
  5. PLAVIX [Concomitant]
     Active Substance: CLOPIDOGREL BISULFATE
     Indication: Anticoagulant therapy
     Dosage: 75 MG, AM
     Route: 065
     Dates: start: 202310
  6. TAMSULOSIN HYDROCHLORIDE [Concomitant]
     Active Substance: TAMSULOSIN HYDROCHLORIDE
     Indication: Bladder disorder
     Dosage: 4 MG, AM
     Route: 065
     Dates: start: 20221004
  7. PREDNISONE [Concomitant]
     Active Substance: PREDNISONE
     Indication: Product used for unknown indication
     Dosage: 2.5 MG, 2 TABLETS, NOON
     Route: 065
     Dates: start: 20230804
  8. EZETIMIBE [Concomitant]
     Active Substance: EZETIMIBE
     Indication: Hypercholesterolaemia
     Dosage: 10 MG, AM
     Route: 065
     Dates: start: 20220715
  9. GABAPENTIN [Concomitant]
     Active Substance: GABAPENTIN
     Indication: Neuropathy peripheral
     Dosage: 100 MG, AM
     Route: 065
     Dates: start: 20230727
  10. GABAPENTIN [Concomitant]
     Active Substance: GABAPENTIN
     Dosage: 100 MG, PM
     Route: 065
     Dates: start: 20230727
  11. NITROGLYCERIN [Concomitant]
     Active Substance: NITROGLYCERIN
     Indication: Stent placement
     Dosage: 0.4 MG, AS NEEDED
     Route: 065
     Dates: start: 20230804
  12. RANOLAZINE [Concomitant]
     Active Substance: RANOLAZINE
     Indication: Chest pain
     Dosage: 500 MG, AM/PM
     Route: 065
     Dates: start: 20230823, end: 20231026
  13. RANOLAZINE [Concomitant]
     Active Substance: RANOLAZINE
     Dosage: 500 MG, PM
     Route: 065
     Dates: start: 20230823, end: 20231026
  14. RANOLAZINE [Concomitant]
     Active Substance: RANOLAZINE
     Dosage: 1000 MG
     Route: 065
     Dates: start: 20231026
  15. CARVEDILOL [Concomitant]
     Active Substance: CARVEDILOL
     Indication: Hypertension
     Dosage: 3.125 MG, AM
     Route: 065
     Dates: start: 20230823
  16. CARVEDILOL [Concomitant]
     Active Substance: CARVEDILOL
     Dosage: 3.125 MG, PM
     Route: 065
     Dates: start: 20230823
  17. RANOLAZINE [Concomitant]
     Active Substance: RANOLAZINE
     Indication: Chest pain
     Dosage: 500 MG
     Route: 065
     Dates: start: 20230823, end: 20231026
  18. RANOLAZINE [Concomitant]
     Active Substance: RANOLAZINE
     Indication: Chest pain
     Dosage: UNK
  19. RANOLAZINE [Concomitant]
     Active Substance: RANOLAZINE
     Dosage: 1000 MG
     Route: 065
     Dates: start: 20231026

REACTIONS (1)
  - Injection site bruising [Recovered/Resolved]

NARRATIVE: CASE EVENT DATE: 20230917
